FAERS Safety Report 6537133-X (Version None)
Quarter: 2010Q1

REPORT INFORMATION
  Report Type: 
  Country: None (occurrence: None)
  Receive Date: 20100114
  Receipt Date: 20100112
  Transmission Date: 20100710
  Serious: Yes (Death, Life-Threatening, Hospitalization, Other)
  Sender: FDA-Public Use
  Company Number: NL-BAYER-200941596GPV

PATIENT
  Age: 71 Year
  Sex: Male

DRUGS (19)
  1. NEXAVAR [Suspect]
     Indication: HEPATIC NEOPLASM MALIGNANT
     Dosage: TOTAL DAILY DOSE: 400 MG  UNIT DOSE: 200 MG
     Route: 048
     Dates: start: 20091117, end: 20091126
  2. NEXAVAR [Suspect]
     Dosage: TOTAL DAILY DOSE: 800 MG  UNIT DOSE: 200 MG
     Route: 048
     Dates: start: 20091127
  3. TRIMETHOPRIM [Concomitant]
     Indication: CYSTITIS
     Route: 048
  4. SIMVASTATIN [Concomitant]
     Indication: BLOOD CHOLESTEROL DECREASED
     Route: 048
  5. LANOXIN [Concomitant]
     Route: 048
  6. METFORMIN HCL [Concomitant]
     Indication: DIABETES MELLITUS
     Dosage: TOTAL DAILY DOSE: 2550 MG
     Route: 048
     Dates: end: 20091130
  7. METFORMIN HCL [Concomitant]
     Dosage: TOTAL DAILY DOSE: 1500 MG
     Route: 048
     Dates: end: 20091102
  8. METFORMIN HCL [Concomitant]
     Dosage: TOTAL DAILY DOSE: 1000 MG
     Route: 048
     Dates: start: 20091203
  9. SOTALOL [Concomitant]
     Route: 048
  10. ENALAPRIL [Concomitant]
     Indication: BLOOD PRESSURE DECREASED
     Route: 048
  11. PARACETAMOL [Concomitant]
     Indication: PAIN
     Route: 048
  12. GLIMEPIRIDE [Concomitant]
     Indication: DIABETES MELLITUS
     Dosage: 1 MG
     Dates: end: 20091203
  13. GLIMEPIRIDE [Concomitant]
     Dosage: 2 MG
     Dates: end: 20091202
  14. VITAMIN B COMPLEX CAP [Concomitant]
     Route: 048
  15. MEDROXYPROGESTERONE [Concomitant]
     Indication: INCREASED APPETITE
     Route: 048
  16. FENTANYL-100 [Concomitant]
     Indication: PAIN
     Dosage: 12MCG PLASTER
  17. LOPERAMIDE [Concomitant]
     Indication: DIARRHOEA
     Route: 048
  18. ACENOCOUMAROL [Concomitant]
     Indication: COAGULOPATHY
     Dosage: FOLLOWING SCHEME
     Route: 048
  19. IBRUPROFEN [Concomitant]
     Dosage: ONLY 04-12-2009 THEN STOP
     Dates: start: 20091204, end: 20091204

REACTIONS (11)
  - ABDOMINAL CAVITY DRAINAGE [None]
  - CACHEXIA [None]
  - CONFUSIONAL STATE [None]
  - DECREASED APPETITE [None]
  - DYSPHAGIA [None]
  - FATIGUE [None]
  - GENERAL PHYSICAL HEALTH DETERIORATION [None]
  - HYPOGLYCAEMIA [None]
  - INTERNATIONAL NORMALISED RATIO FLUCTUATION [None]
  - LOOSE TOOTH [None]
  - MELAENA [None]
